FAERS Safety Report 8609249-5 (Version None)
Quarter: 2012Q3

REPORT INFORMATION
  Report Type: 
  Country: None (occurrence: None)
  Receive Date: 20120821
  Receipt Date: 20120813
  Transmission Date: 20120928
  Serious: Yes (Other)
  Sender: FDA-Public Use
  Company Number: DE-JNJFOC-20120809177

PATIENT
  Age: 39 Year
  Sex: Female

DRUGS (7)
  1. DIPHTHERIA AND TETANUS TOXOIDS [Concomitant]
     Indication: IMMUNISATION
     Route: 030
     Dates: start: 20110421, end: 20110421
  2. CETIRIZINE HYDROCHLORIDE [Suspect]
     Indication: SEASONAL ALLERGY
     Route: 048
     Dates: start: 20110308, end: 20110428
  3. OTRIVIN [Suspect]
     Indication: RHINITIS ALLERGIC
     Route: 045
     Dates: start: 20110308, end: 20111214
  4. AMOXICILLIN AND CLAVULANATE POTASSIUM [Concomitant]
     Indication: ABSCESS
     Dosage: 125MG/500MG 3 TIMES A DAY (TOTALLY 375MG/1500MG/DAY)
     Route: 048
     Dates: start: 20110420, end: 20110427
  5. CETIRIZINE HYDROCHLORIDE [Suspect]
     Route: 048
  6. FOLIC ACID [Concomitant]
     Indication: PRODUCT USED FOR UNKNOWN INDICATION
     Route: 065
  7. INSULIN [Concomitant]
     Indication: DIABETES MELLITUS
     Route: 065
     Dates: start: 20111016

REACTIONS (3)
  - MATERNAL EXPOSURE DURING PREGNANCY [None]
  - GESTATIONAL DIABETES [None]
  - CAESAREAN SECTION [None]
